FAERS Safety Report 7048560-9 (Version None)
Quarter: 2010Q4

REPORT INFORMATION
  Report Type: 
  Country: None (occurrence: None)
  Receive Date: 20101008
  Receipt Date: 20100927
  Transmission Date: 20110411
  Serious: Yes (Other)
  Sender: FDA-Public Use
  Company Number: 018871

PATIENT
  Sex: Female
  Weight: 48.9 kg

DRUGS (1)
  1. KEPPRA [Suspect]
     Indication: CONVULSION
     Dosage: (500 MG QD ORAL)
     Route: 048
     Dates: start: 20100831, end: 20100902

REACTIONS (1)
  - STEVENS-JOHNSON SYNDROME [None]
